FAERS Safety Report 9192156 (Version 1)
Quarter: 2013Q1

REPORT INFORMATION
  Report Type: Spontaneous
  Country: US (occurrence: None)
  Receive Date: 20130326
  Receipt Date: 20130326
  Transmission Date: 20140127
  Serious: Yes (Other)
  Sender: FDA-Public Use
  Company Number: None

PATIENT
  Age: 66 Year
  Sex: Female

DRUGS (1)
  1. CIPROFLOXACIN [Suspect]
     Indication: PREOPERATIVE CARE
     Route: 042
     Dates: start: 20130315, end: 20130315

REACTIONS (3)
  - Injection site erythema [None]
  - Injection site vesicles [None]
  - Injection site swelling [None]
